FAERS Safety Report 25374370 (Version 1)
Quarter: 2025Q2

REPORT INFORMATION
  Report Type: Spontaneous
  Country: US (occurrence: None)
  Receive Date: 20250528
  Receipt Date: 20250528
  Transmission Date: 20250716
  Serious: Yes (Disabling)
  Sender: FDA-CTU
  Company Number: None

PATIENT
  Age: 26 Year
  Sex: Female
  Weight: 58.5 kg

DRUGS (1)
  1. VENLAFAXINE [Suspect]
     Active Substance: VENLAFAXINE HYDROCHLORIDE
     Indication: Migraine
     Dates: start: 20200101

REACTIONS (8)
  - Headache [None]
  - Insomnia [None]
  - Photophobia [None]
  - Arthralgia [None]
  - Paraesthesia [None]
  - Postural orthostatic tachycardia syndrome [None]
  - Brain fog [None]
  - Vertigo [None]
